FAERS Safety Report 9384438 (Version 4)
Quarter: 2016Q2

REPORT INFORMATION
  Report Type: Spontaneous
  Country: FR (occurrence: FR)
  Receive Date: 20130705
  Receipt Date: 20160602
  Transmission Date: 20160815
  Serious: Yes (Hospitalization, Other)
  Sender: FDA-Public Use
  Company Number: FR-ASTRAZENECA-2013SE49807

PATIENT
  Age: 63 Year
  Sex: Female
  Weight: 53 kg

DRUGS (8)
  1. MOPRAL [Suspect]
     Active Substance: OMEPRAZOLE SODIUM
     Indication: GASTROOESOPHAGEAL REFLUX DISEASE
     Route: 048
  2. MOPRAL [Suspect]
     Active Substance: OMEPRAZOLE SODIUM
     Indication: GASTROOESOPHAGEAL REFLUX DISEASE
     Dosage: 20 MG TWO TIMES A DAY
     Route: 048
     Dates: end: 20130711
  3. MOPRAL [Suspect]
     Active Substance: OMEPRAZOLE SODIUM
     Indication: GASTROOESOPHAGEAL REFLUX DISEASE
     Route: 048
     Dates: start: 20130725
  4. RENITEC [Concomitant]
     Active Substance: ENALAPRIL MALEATE
     Indication: HYPERTENSION
     Dates: start: 201603
  5. ZOLPIDEM [Concomitant]
     Active Substance: ZOLPIDEM\ZOLPIDEM TARTRATE
  6. MOPRAL [Suspect]
     Active Substance: OMEPRAZOLE SODIUM
     Indication: GASTROOESOPHAGEAL REFLUX DISEASE
     Route: 048
     Dates: start: 20130711, end: 20130719
  7. VITAMINS [Concomitant]
     Active Substance: VITAMINS
  8. ALLOPURINOL. [Concomitant]
     Active Substance: ALLOPURINOL
     Indication: GOUT
     Dosage: 100.0MG UNKNOWN

REACTIONS (9)
  - Emotional disorder [Unknown]
  - Barrett^s oesophagus [Unknown]
  - Drug dose omission [Recovered/Resolved]
  - Hypoalbuminaemia [Unknown]
  - Hyponatraemia [Not Recovered/Not Resolved]
  - Undifferentiated sarcoma [Not Recovered/Not Resolved]
  - Functional gastrointestinal disorder [Recovered/Resolved]
  - Hypergastrinaemia [Unknown]
  - Malnutrition [Recovered/Resolved]

NARRATIVE: CASE EVENT DATE: 201009
